FAERS Safety Report 8222148-6 (Version None)
Quarter: 2012Q1

REPORT INFORMATION
  Report Type: 
  Country: None (occurrence: None)
  Receive Date: 20120320
  Receipt Date: 20120309
  Transmission Date: 20120608
  Serious: Yes (Other)
  Sender: FDA-Public Use
  Company Number: IN-JNJFOC-20120305951

PATIENT
  Age: 69 Year
  Weight: 76 kg

DRUGS (1)
  1. RIVAROXABAN [Suspect]
     Indication: ILL-DEFINED DISORDER
     Route: 048

REACTIONS (1)
  - DEEP VEIN THROMBOSIS [None]
